FAERS Safety Report 17468590 (Version 1)
Quarter: 2020Q1

REPORT INFORMATION
  Report Type: Spontaneous
  Country: US (occurrence: US)
  Receive Date: 20200227
  Receipt Date: 20200227
  Transmission Date: 20200409
  Serious: No
  Sender: FDA-Public Use
  Company Number: None

PATIENT
  Age: 37 Year
  Sex: Female

DRUGS (3)
  1. BUPRENORPHINE/NALAXONE FILMS [Suspect]
     Active Substance: BUPRENORPHINE\NALOXONE
     Indication: DRUG DEPENDENCE
     Route: 048
     Dates: start: 20191022, end: 20200227
  2. BUPRENORPHINE NALOXONE 8-2MG TABLETS [Suspect]
     Active Substance: BUPRENORPHINE HYDROCHLORIDE\NALOXONE HYDROCHLORIDE
     Dates: start: 20190304, end: 20190401
  3. SUBOXONE [Concomitant]
     Active Substance: BUPRENORPHINE HYDROCHLORIDE\NALOXONE HYDROCHLORIDE
     Dates: start: 20190401, end: 20200227

REACTIONS (9)
  - Insomnia [None]
  - Drug dependence [None]
  - Drug withdrawal syndrome [None]
  - Product substitution issue [None]
  - Irritability [None]
  - Lacrimation increased [None]
  - Poor quality sleep [None]
  - Treatment failure [None]
  - Fatigue [None]

NARRATIVE: CASE EVENT DATE: 20200227
